FAERS Safety Report 20527777 (Version 2)
Quarter: 2022Q2

REPORT INFORMATION
  Report Type: Spontaneous
  Country: US (occurrence: US)
  Receive Date: 20220228
  Receipt Date: 20220407
  Transmission Date: 20220720
  Serious: No
  Sender: FDA-Public Use
  Company Number: US-KARYOPHARM-2022KPT000176

PATIENT

DRUGS (7)
  1. XPOVIO [Suspect]
     Active Substance: SELINEXOR
     Indication: Plasma cell myeloma
     Dosage: 100 MG, WEEKLY
     Route: 048
     Dates: start: 20220118, end: 2022
  2. XPOVIO [Suspect]
     Active Substance: SELINEXOR
     Dosage: 80 MG, WEEKLY
     Route: 048
     Dates: start: 2022
  3. DEXAMETHASONE [Concomitant]
     Active Substance: DEXAMETHASONE
     Dosage: 25 MG, WEEKLY
  4. VELCADE [Concomitant]
     Active Substance: BORTEZOMIB
     Dosage: UNK
  5. NEUPOGEN [Concomitant]
     Active Substance: FILGRASTIM
     Dosage: UNK
  6. PROCRIT [Concomitant]
     Active Substance: ERYTHROPOIETIN
     Dosage: UNK
  7. ONDANSETRON [Concomitant]
     Active Substance: ONDANSETRON
     Indication: Nausea
     Dosage: UNK

REACTIONS (8)
  - White blood cell count decreased [Unknown]
  - Abdominal discomfort [Unknown]
  - Anxiety [Unknown]
  - Diarrhoea [Unknown]
  - Nausea [Recovered/Resolved]
  - Epistaxis [Unknown]
  - Platelet count decreased [Unknown]
  - Product prescribing error [Unknown]

NARRATIVE: CASE EVENT DATE: 20220101
